FAERS Safety Report 16371230 (Version 2)
Quarter: 2019Q2

REPORT INFORMATION
  Report Type: Spontaneous
  Country: FR (occurrence: FR)
  Receive Date: 20190530
  Receipt Date: 20190604
  Transmission Date: 20190711
  Serious: Yes (Hospitalization)
  Sender: FDA-Public Use
  Company Number: FR-PFIZER INC-2019229510

PATIENT
  Age: 81 Year
  Sex: Female

DRUGS (4)
  1. KARDEGIC [Concomitant]
     Active Substance: ASPIRIN DL-LYSINE
     Dosage: UNK
     Route: 065
  2. CARBOSYMAG [ACTIVATED CHARCOAL\MAGNESIUM OXIDE\SIMETHICONE] [Suspect]
     Active Substance: ACTIVATED CHARCOAL\MAGNESIUM OXIDE\SIMETHICONE
     Indication: DYSPEPSIA
     Dosage: UNK
     Route: 048
     Dates: start: 20121127, end: 20121201
  3. CACIT VITAMINE D3 [Concomitant]
     Active Substance: CALCIUM CARBONATE\CHOLECALCIFEROL
     Dosage: UNK
     Route: 065
  4. INIPOMP [Suspect]
     Active Substance: PANTOPRAZOLE SODIUM
     Indication: DYSPEPSIA
     Dosage: UNK
     Route: 048
     Dates: end: 20121201

REACTIONS (3)
  - Syncope [Recovered/Resolved]
  - Diarrhoea [Recovered/Resolved]
  - Electrocardiogram abnormal [Recovered/Resolved with Sequelae]

NARRATIVE: CASE EVENT DATE: 20121201
